FAERS Safety Report 7794646 (Version 2)
Quarter: 2013Q4

REPORT INFORMATION
  Report Type: Spontaneous
  Country: US (occurrence: US)
  Receive Date: 20110201
  Receipt Date: 20131217
  Transmission Date: 20140711
  Serious: Yes (Other)
  Sender: FDA-Public Use
  Company Number: US-ELI_LILLY_AND_COMPANY-US201101005749

PATIENT
  Sex: Male

DRUGS (2)
  1. ZYPREXA [Suspect]
     Indication: SCHIZOPHRENIA
     Dosage: UNK, UNK
     Dates: start: 1998, end: 2001
  2. SEROQUEL [Concomitant]
     Dosage: 1 DF, UNKNOWN

REACTIONS (22)
  - Myocardial infarction [Unknown]
  - Loss of consciousness [Unknown]
  - Confusional state [Unknown]
  - Heart rate decreased [Unknown]
  - Dysarthria [Unknown]
  - Memory impairment [Unknown]
  - Fall [Unknown]
  - Drooling [Unknown]
  - Dyspnoea [Unknown]
  - Dyspepsia [Unknown]
  - Anxiety [Unknown]
  - Vision blurred [Unknown]
  - Tremor [Unknown]
  - Dysphagia [Unknown]
  - Sensation of heaviness [Unknown]
  - Skin discolouration [Unknown]
  - Feeling cold [Unknown]
  - Impaired driving ability [Unknown]
  - Road traffic accident [Unknown]
  - Fear [Unknown]
  - Blood cholesterol increased [Unknown]
  - Sweat gland disorder [Unknown]
